FAERS Safety Report 6530802-7 (Version None)
Quarter: 2010Q1

REPORT INFORMATION
  Report Type: 
  Country: None (occurrence: None)
  Receive Date: 20100108
  Receipt Date: 20090225
  Transmission Date: 20100710
  Serious: No
  Sender: FDA-Public Use
  Company Number: A0770437A

PATIENT
  Age: 62 Year
  Sex: Female

DRUGS (7)
  1. LOVAZA [Suspect]
     Dosage: 2G TWICE PER DAY
     Route: 048
     Dates: start: 20090201
  2. DILTIAZEM [Concomitant]
  3. ENALAPRIL [Concomitant]
  4. TRIAMTERENE [Concomitant]
  5. NEXIUM [Concomitant]
  6. PLAVIX [Concomitant]
  7. ARTHRITIS MEDICATION [Concomitant]

REACTIONS (1)
  - DIARRHOEA [None]
